FAERS Safety Report 9516172 (Version 1)
Quarter: 2013Q3

REPORT INFORMATION
  Report Type: Spontaneous
  Country: US (occurrence: None)
  Receive Date: 20130904
  Receipt Date: 20130904
  Transmission Date: 20140515
  Serious: Yes (Life-Threatening, Other)
  Sender: FDA-Public Use
  Company Number: 54973 AE1486

PATIENT
  Age: 10 Year
  Sex: Female

DRUGS (1)
  1. HYLAND^S [Suspect]
     Indication: EAR PAIN
     Dosage: 4 DROPS IN LEFT EAR

REACTIONS (5)
  - Dyspnoea [None]
  - Throat tightness [None]
  - Swollen tongue [None]
  - Palatal oedema [None]
  - Oxygen saturation decreased [None]
